FAERS Safety Report 25541409 (Version 2)
Quarter: 2025Q3

REPORT INFORMATION
  Report Type: Report from Study
  Country: CO (occurrence: CO)
  Receive Date: 20250711
  Receipt Date: 20250728
  Transmission Date: 20251020
  Serious: Yes (Death, Hospitalization)
  Sender: ABBVIE
  Company Number: CO-ABBVIE-6360377

PATIENT
  Age: 57 Year
  Sex: Male
  Weight: 53 kg

DRUGS (1)
  1. VENCLEXTA [Suspect]
     Active Substance: VENETOCLAX
     Indication: Acute myeloid leukaemia
     Dosage: FORM STRENGTH- 100MG
     Route: 048
     Dates: start: 20240919, end: 20250228

REACTIONS (2)
  - COVID-19 pneumonia [Fatal]
  - Pallor [Not Recovered/Not Resolved]

NARRATIVE: CASE EVENT DATE: 20250601
